FAERS Safety Report 15682312 (Version 1)
Quarter: 2018Q4

REPORT INFORMATION
  Report Type: Spontaneous
  Country: US (occurrence: US)
  Receive Date: 20181203
  Receipt Date: 20181203
  Transmission Date: 20190205
  Serious: Yes (Hospitalization)
  Sender: FDA-Public Use
  Company Number: US-B.I. PHARMACEUTICALS,INC./RIDGEFIELD-2018-BI-057431

PATIENT
  Sex: Female

DRUGS (1)
  1. JARDIANCE [Suspect]
     Active Substance: EMPAGLIFLOZIN
     Indication: TYPE 2 DIABETES MELLITUS
     Dosage: ;FORM STRENGTH: 25 MG; FORMULATION: TABLET ADMINISTRATION CORRECT? YES
     Route: 048
     Dates: start: 201804, end: 201810

REACTIONS (6)
  - Dizziness postural [Recovered/Resolved]
  - Genital infection [Not Recovered/Not Resolved]
  - Aortic valve stenosis [Recovered/Resolved]
  - Blood insulin decreased [Not Recovered/Not Resolved]
  - Hypertension [Recovered/Resolved]
  - Nausea [Recovered/Resolved]

NARRATIVE: CASE EVENT DATE: 2018
